FAERS Safety Report 24171836 (Version 1)
Quarter: 2024Q3

REPORT INFORMATION
  Report Type: Spontaneous
  Country: CA (occurrence: CA)
  Receive Date: 20240805
  Receipt Date: 20240805
  Transmission Date: 20241017
  Serious: Yes (Other)
  Sender: AMGEN
  Company Number: CA-AMGEN-CANSP2024151608

PATIENT
  Age: 74 Year
  Sex: Female
  Weight: 66.213 kg

DRUGS (3)
  1. PROLIA [Suspect]
     Active Substance: DENOSUMAB
     Indication: Osteoporosis
     Dosage: 60 MILLIGRAM PER MILLILITRE, Q6MO (DOSAGE FORM: SOLUTION SUBCUTANEOUS)
     Route: 051
  2. CANDESARTAN + HCTZ MK [Concomitant]
  3. CRESTOR [Concomitant]
     Active Substance: ROSUVASTATIN CALCIUM

REACTIONS (3)
  - Discomfort [Not Recovered/Not Resolved]
  - Malocclusion [Not Recovered/Not Resolved]
  - Pain in jaw [Not Recovered/Not Resolved]
